FAERS Safety Report 9929211 (Version 2)
Quarter: 2014Q1

REPORT INFORMATION
  Report Type: Report from Study
  Country: JP (occurrence: JP)
  Receive Date: 20140227
  Receipt Date: 20140227
  Transmission Date: 20141002
  Serious: Yes (Life-Threatening, Hospitalization)
  Sender: FDA-Public Use
  Company Number: JP-CELGENEUS-087-50794-13054859

PATIENT
  Age: 70 Year
  Sex: Male
  Weight: 47 kg

DRUGS (31)
  1. VIDAZA [Suspect]
     Indication: MYELODYSPLASTIC SYNDROME
     Dosage: 75 MILLIGRAM/SQ. METER
     Route: 058
     Dates: start: 20110516, end: 20110522
  2. VIDAZA [Suspect]
     Dosage: 75 MILLIGRAM/SQ. METER
     Route: 058
     Dates: start: 20110614, end: 20110623
  3. VIDAZA [Suspect]
     Dosage: 75 MILLIGRAM/SQ. METER
     Route: 058
     Dates: start: 20110815, end: 20110821
  4. VIDAZA [Suspect]
     Dosage: 75 MILLIGRAM/SQ. METER
     Route: 041
     Dates: start: 20130115, end: 20130121
  5. VIDAZA [Suspect]
     Dosage: 75 MILLIGRAM/SQ. METER
     Route: 058
     Dates: start: 20130212, end: 20130218
  6. MAGMITT [Concomitant]
     Indication: PRODUCT USED FOR UNKNOWN INDICATION
     Route: 065
     Dates: start: 20110525
  7. MAGMITT [Concomitant]
     Route: 065
  8. VOLTAREN [Concomitant]
     Indication: PRODUCT USED FOR UNKNOWN INDICATION
     Route: 065
  9. VOLTAREN [Concomitant]
     Route: 065
  10. VITAMEDIN [Concomitant]
     Indication: PRODUCT USED FOR UNKNOWN INDICATION
     Route: 065
  11. TERNELIN [Concomitant]
     Indication: PRODUCT USED FOR UNKNOWN INDICATION
     Route: 065
  12. TAGAMET [Concomitant]
     Indication: PRODUCT USED FOR UNKNOWN INDICATION
     Route: 065
  13. OZEX [Concomitant]
     Indication: PRODUCT USED FOR UNKNOWN INDICATION
     Route: 065
     Dates: start: 20110518, end: 20110524
  14. FLUCONAZOLE [Concomitant]
     Indication: PRODUCT USED FOR UNKNOWN INDICATION
     Route: 065
     Dates: start: 20110518
  15. LASIX [Concomitant]
     Indication: PRODUCT USED FOR UNKNOWN INDICATION
     Route: 065
     Dates: start: 20110608, end: 20110611
  16. KALIMATE [Concomitant]
     Indication: PRODUCT USED FOR UNKNOWN INDICATION
     Route: 065
     Dates: start: 20110615
  17. CEFZON [Concomitant]
     Indication: PRODUCT USED FOR UNKNOWN INDICATION
     Route: 065
     Dates: start: 20110615
  18. SIGMART [Concomitant]
     Indication: PRODUCT USED FOR UNKNOWN INDICATION
     Route: 065
     Dates: end: 20130214
  19. BAYASPIRIN [Concomitant]
     Indication: PRODUCT USED FOR UNKNOWN INDICATION
     Route: 065
  20. PURSENNID [Concomitant]
     Indication: PRODUCT USED FOR UNKNOWN INDICATION
     Route: 065
  21. MAGLAX [Concomitant]
     Indication: PRODUCT USED FOR UNKNOWN INDICATION
     Route: 065
  22. TAKEPRON [Concomitant]
     Indication: PRODUCT USED FOR UNKNOWN INDICATION
     Route: 065
  23. EXJADE [Concomitant]
     Indication: PRODUCT USED FOR UNKNOWN INDICATION
     Route: 065
     Dates: end: 20130207
  24. EXJADE [Concomitant]
     Route: 065
     Dates: start: 20130213
  25. PLAVIX [Concomitant]
     Indication: PRODUCT USED FOR UNKNOWN INDICATION
     Route: 065
  26. ALLEGRA [Concomitant]
     Indication: PRODUCT USED FOR UNKNOWN INDICATION
     Route: 065
  27. CRAVIT [Concomitant]
     Indication: PRODUCT USED FOR UNKNOWN INDICATION
     Route: 065
     Dates: start: 20130116, end: 20130123
  28. FAROM [Concomitant]
     Indication: PRODUCT USED FOR UNKNOWN INDICATION
     Route: 065
     Dates: start: 20130218, end: 20130311
  29. ITRIZOLE [Concomitant]
     Indication: PRODUCT USED FOR UNKNOWN INDICATION
     Route: 065
     Dates: start: 20130222
  30. ALOXI [Concomitant]
     Indication: PRODUCT USED FOR UNKNOWN INDICATION
     Route: 065
     Dates: start: 20130116, end: 20130116
  31. ALOXI [Concomitant]
     Route: 065
     Dates: start: 20130212, end: 20130212

REACTIONS (2)
  - Neutropenia [Recovered/Resolved]
  - Pneumonia [Recovered/Resolved]
